FAERS Safety Report 7076613-8 (Version None)
Quarter: 2010Q4

REPORT INFORMATION
  Report Type: 
  Country: None (occurrence: None)
  Receive Date: 20101029
  Receipt Date: 20101029
  Transmission Date: 20110411
  Serious: Yes (Other)
  Sender: FDA-Public Use
  Company Number: None

PATIENT
  Sex: Female
  Weight: 53.5244 kg

DRUGS (3)
  1. RECLAST [Suspect]
     Dosage: 5MG/100ML ONCE A YEAR IV
     Route: 042
     Dates: start: 20080101
  2. RECLAST [Suspect]
     Dosage: 5MG/100ML ONCE A YEAR IV
     Route: 042
     Dates: start: 20090921
  3. RECLAST [Suspect]
     Dosage: 5MG/100ML ONCE A YEAR IV
     Route: 042
     Dates: start: 20101008

REACTIONS (3)
  - PRURITUS [None]
  - RASH ERYTHEMATOUS [None]
  - VISUAL ACUITY REDUCED [None]
